FAERS Safety Report 5523572-2 (Version None)
Quarter: 2007Q4

REPORT INFORMATION
  Report Type: 
  Country: None (occurrence: None)
  Receive Date: 20071121
  Receipt Date: 20071109
  Transmission Date: 20080405
  Serious: Yes (Disabling)
  Sender: FDA-Public Use
  Company Number: HU-ROCHE-530684

PATIENT
  Age: 52 Year
  Sex: Female
  Weight: 59 kg

DRUGS (2)
  1. PEG-INTERFERON A-2A (RO 25-8310) [Suspect]
     Route: 065
     Dates: start: 20070927, end: 20071031
  2. RIBAVIRIN [Suspect]
     Dosage: DOSE REGIMEN REPORTED AS 2X2 TABLETS (800MG) DAILY.
     Route: 065
     Dates: start: 20070927, end: 20071031

REACTIONS (1)
  - UVEITIS [None]
